FAERS Safety Report 21667935 (Version 1)
Quarter: 2022Q4

REPORT INFORMATION
  Report Type: Report from Study
  Country: US (occurrence: US)
  Receive Date: 20221201
  Receipt Date: 20221201
  Transmission Date: 20230113
  Serious: Yes (Hospitalization)
  Sender: FDA-Public Use
  Company Number: US-UNITED THERAPEUTICS-UNT-2022-028434

PATIENT
  Age: 15 Year
  Sex: Female
  Weight: 47 kg

DRUGS (9)
  1. UNITUXIN [Suspect]
     Active Substance: DINUTUXIMAB
     Indication: Neuroblastoma
     Dosage: 25.2 MG, CYCLICAL (CYCLE 2)
     Route: 041
     Dates: start: 20221113, end: 20221117
  2. IOBENGUANE I-131 [Suspect]
     Active Substance: IOBENGUANE I-131
     Indication: Neuroblastoma
     Dosage: 892 MCI, ONCE
     Route: 042
     Dates: start: 20221104, end: 20221104
  3. VORINOSTAT [Suspect]
     Active Substance: VORINOSTAT
     Indication: Neuroblastoma
     Dosage: 260 MG, QD
     Route: 048
     Dates: start: 20221103, end: 20221116
  4. SARGRAMOSTIM [Suspect]
     Active Substance: SARGRAMOSTIM
     Indication: Neuroblastoma
     Dosage: 360 ?G, QD
     Route: 058
     Dates: start: 20221113, end: 20221123
  5. SODIUM CHLORIDE [Concomitant]
     Active Substance: SODIUM CHLORIDE
     Indication: Prophylaxis
     Dosage: 10 ML/HR
     Route: 042
     Dates: start: 20221103, end: 20221120
  6. CETYLPYRIDINIUM CHLORIDE [Concomitant]
     Active Substance: CETYLPYRIDINIUM CHLORIDE
     Indication: Dry mouth
     Dosage: UNK, QID
     Route: 048
     Dates: start: 20221103, end: 20221120
  7. HEPARIN SODIUM [Concomitant]
     Active Substance: HEPARIN SODIUM
     Indication: Prophylaxis
     Dosage: 20 UNITS, PRN
     Route: 042
     Dates: start: 20221103, end: 20221120
  8. NORETHINDRONE [Concomitant]
     Active Substance: NORETHINDRONE
     Indication: Menstrual cycle management
     Dosage: 5 MG, QD
     Route: 048
     Dates: start: 20221103, end: 20221120
  9. SCOPOLAMINE [Concomitant]
     Active Substance: SCOPOLAMINE
     Indication: Nausea
     Dosage: 1 MG PATCH TO SKIN Q3D
     Route: 062
     Dates: start: 20221103, end: 20221120

REACTIONS (4)
  - Oral pain [Not Recovered/Not Resolved]
  - Cough [Not Recovered/Not Resolved]
  - Platelet count decreased [Not Recovered/Not Resolved]
  - Myalgia [Not Recovered/Not Resolved]

NARRATIVE: CASE EVENT DATE: 20221104
